FAERS Safety Report 6777914-0 (Version None)
Quarter: 2010Q2

REPORT INFORMATION
  Report Type: 
  Country: None (occurrence: None)
  Receive Date: 20100618
  Receipt Date: 20100610
  Transmission Date: 20101027
  Serious: Yes (Hospitalization)
  Sender: FDA-Public Use
  Company Number: US-BIOGENIDEC-2010BI016510

PATIENT
  Age: 42 Year
  Sex: Male

DRUGS (2)
  1. TYSABRI [Suspect]
     Indication: MULTIPLE SCLEROSIS
     Route: 042
     Dates: start: 20061108, end: 20061108
  2. TYSABRI [Suspect]
     Route: 042
     Dates: start: 20091020

REACTIONS (3)
  - DEHYDRATION [None]
  - INFECTION [None]
  - NEPHROLITHIASIS [None]
